FAERS Safety Report 4828453-5 (Version None)
Quarter: 2005Q4

REPORT INFORMATION
  Report Type: 
  Country: None (occurrence: None)
  Receive Date: 20051115
  Receipt Date: 20051107
  Transmission Date: 20060501
  Serious: Yes (Death)
  Sender: FDA-Public Use
  Company Number: US-JNJFOC-20051102216

PATIENT
  Sex: Female

DRUGS (13)
  1. FLEXERIL [Suspect]
     Route: 048
  2. ALBUTEROL [Concomitant]
     Dosage: 2 PUFFS EVERY 4 HOURS AS NEEDED
  3. LASIX [Concomitant]
  4. HYDROCODONE [Concomitant]
     Dosage: 7.5 MG EVERY 6 HOURS AS NEEDED
  5. ATIVAN [Concomitant]
     Dosage: 2 MG, THREE TIMES A DAY AS NEEDED
  6. LIPITOR [Concomitant]
  7. ADVIL [Concomitant]
  8. LEVOTHYROXINE SODIUM [Concomitant]
  9. REMERON [Concomitant]
  10. PROTONIX [Concomitant]
  11. ESTRADIOL INJ [Concomitant]
  12. HYZAAR [Concomitant]
  13. HYZAAR [Concomitant]
     Dosage: 50/12.5 MG ONE DAILY

REACTIONS (1)
  - DEATH [None]
